FAERS Safety Report 23760402 (Version 1)
Quarter: 2024Q2

REPORT INFORMATION
  Report Type: Report from Study
  Country: AR (occurrence: AR)
  Receive Date: 20240419
  Receipt Date: 20240419
  Transmission Date: 20240716
  Serious: Yes (Other)
  Sender: FDA-Public Use
  Company Number: AR-JNJFOC-20240433846

PATIENT
  Age: 67 Year
  Sex: Male

DRUGS (1)
  1. SIMPONI [Suspect]
     Active Substance: GOLIMUMAB
     Indication: Rheumatoid arthritis
     Dosage: LAST DRUG APPLICATION: DEC-2023
     Route: 041
     Dates: start: 20190819

REACTIONS (2)
  - Eye injury [Unknown]
  - Gaze palsy [Unknown]

NARRATIVE: CASE EVENT DATE: 20231201
